FAERS Safety Report 9356237 (Version 4)
Quarter: 2013Q3

REPORT INFORMATION
  Report Type: Report from Study
  Country: DE (occurrence: DE)
  Receive Date: 20130619
  Receipt Date: 20130923
  Transmission Date: 20140515
  Serious: Yes (Hospitalization)
  Sender: FDA-Public Use
  Company Number: DE-GLAXOSMITHKLINE-B0900389A

PATIENT
  Age: 70 Year
  Sex: Male
  Weight: 83 kg

DRUGS (6)
  1. PAZOPANIB [Suspect]
     Indication: SARCOMA
     Dosage: 800MG PER DAY
     Dates: start: 20130529, end: 20130616
  2. GABAPENTIN [Suspect]
     Dosage: 300MG THREE TIMES PER DAY
     Dates: start: 201209, end: 201306
  3. SAROTEN [Suspect]
     Dates: start: 201301, end: 201306
  4. ALLOPURINOL [Concomitant]
     Dosage: 150MG PER DAY
     Dates: start: 201209
  5. CEPHORAL [Concomitant]
     Dates: end: 20130603
  6. PANTOPRAZOLE [Concomitant]
     Dates: start: 201306

REACTIONS (2)
  - Cerebellar syndrome [Recovered/Resolved with Sequelae]
  - Neurotoxicity [Recovered/Resolved with Sequelae]
